FAERS Safety Report 18188703 (Version 1)
Quarter: 2020Q3

REPORT INFORMATION
  Report Type: Spontaneous
  Country: NL (occurrence: NL)
  Receive Date: 20200824
  Receipt Date: 20200824
  Transmission Date: 20201103
  Serious: Yes (Other)
  Sender: FDA-Public Use
  Company Number: NL-TEVA-2020-NL-1816967

PATIENT
  Age: 60 Year
  Sex: Female
  Weight: 100 kg

DRUGS (1)
  1. TRAMADOL CAPSULE MGA 50MG / BRAND NAME NOT SPECIFIED [Suspect]
     Active Substance: TRAMADOL
     Indication: RIB FRACTURE
     Dosage: 150 MILLIGRAM DAILY;
     Dates: start: 20200727, end: 20200730

REACTIONS (3)
  - Nausea [Recovered/Resolved]
  - Diarrhoea haemorrhagic [Recovered/Resolved]
  - Dizziness [Recovered/Resolved]

NARRATIVE: CASE EVENT DATE: 20200728
